FAERS Safety Report 16370871 (Version 1)
Quarter: 2019Q2

REPORT INFORMATION
  Report Type: Spontaneous
  Country: KR (occurrence: KR)
  Receive Date: 20190530
  Receipt Date: 20190530
  Transmission Date: 20190711
  Serious: Yes (Hospitalization, Other)
  Sender: FDA-Public Use
  Company Number: KR-SA-2019SA140706

PATIENT
  Age: 77 Year
  Sex: Male

DRUGS (13)
  1. FOLIC ACID. [Suspect]
     Active Substance: FOLIC ACID
     Dosage: 1 MG, QD
     Route: 048
  2. ISOSORBIDE MONONITRATE. [Suspect]
     Active Substance: ISOSORBIDE MONONITRATE
     Dosage: 60 MG QD, ISOTRIL ER TAB. 60MG (ISOSORBIDE-5-MONONITRATE 90%
     Route: 048
  3. CLOPIDOGREL BISULFATE. [Suspect]
     Active Substance: CLOPIDOGREL BISULFATE
     Dosage: 97.875 MG DAILY
     Route: 048
  4. CHOLINE ALFOSCERATE [Suspect]
     Active Substance: CHOLINE ALFOSCERATE
     Dosage: 400 MG X 3 TABLET TID
     Route: 048
  5. HOUTTUYNIA CORDATA [Suspect]
     Active Substance: HERBALS\HOUTTUYNIA CORDATA WHOLE
  6. DONEPEZIL HYDROCHLORIDE. [Suspect]
     Active Substance: DONEPEZIL HYDROCHLORIDE
     Dosage: 10 MG, QD
     Route: 048
  7. TAMSULOSIN HYDROCHLORIDE. [Suspect]
     Active Substance: TAMSULOSIN HYDROCHLORIDE
     Dosage: 0.2 MG, QD (BEFORE SLEEP)
     Route: 048
  8. BISOPROLOL FUMARATE. [Suspect]
     Active Substance: BISOPROLOL FUMARATE
     Dosage: 2.5 MG DAILY
     Route: 048
  9. ROSUVASTATIN CALCIUM. [Suspect]
     Active Substance: ROSUVASTATIN CALCIUM
     Dosage: 10 MG, QD
     Route: 048
  10. LEVETIRACETAM. [Suspect]
     Active Substance: LEVETIRACETAM
     Dosage: 500 MG, BID
     Route: 048
  11. NICORANDIL [Suspect]
     Active Substance: NICORANDIL
     Dosage: 5 MG, BID
     Route: 048
  12. AMANTADINE SULFATE [Suspect]
     Active Substance: AMANTADINE SULFATE
     Dosage: 100 MG, BID
     Route: 048
  13. GINSENG [GINSENG NOS] [Suspect]
     Active Substance: ASIAN GINSENG

REACTIONS (1)
  - Hepatic function abnormal [Recovering/Resolving]

NARRATIVE: CASE EVENT DATE: 20180511
